FAERS Safety Report 25622772 (Version 1)
Quarter: 2025Q3

REPORT INFORMATION
  Report Type: Spontaneous
  Country: US (occurrence: None)
  Receive Date: 20250729
  Receipt Date: 20250729
  Transmission Date: 20251021
  Serious: Yes (Other)
  Sender: FDA-CTU
  Company Number: None

PATIENT
  Age: 59 Year
  Sex: Female
  Weight: 132.75 kg

DRUGS (1)
  1. ZEPBOUND [Suspect]
     Active Substance: TIRZEPATIDE
     Indication: Obesity
     Dates: start: 20250225, end: 20250410

REACTIONS (5)
  - Taste disorder [None]
  - Dysgeusia [None]
  - Product after taste [None]
  - Drug intolerance [None]
  - Tooth disorder [None]

NARRATIVE: CASE EVENT DATE: 20250317
